FAERS Safety Report 16823390 (Version 2)
Quarter: 2020Q3

REPORT INFORMATION
  Report Type: Report from Study
  Country: GB (occurrence: GB)
  Receive Date: 20190918
  Receipt Date: 20191029
  Transmission Date: 20201105
  Serious: Yes (Hospitalization)
  Sender: FDA-Public Use
  Company Number: GB-PFIZER INC-2019392555

PATIENT
  Age: 71 Year
  Sex: Male
  Weight: 92.4 kg

DRUGS (14)
  1. CLOPIDOGREL [Concomitant]
     Active Substance: CLOPIDOGREL BISULFATE
     Indication: PROPHYLAXIS
     Dosage: 75 MG, 1X/DAY (OD)
     Route: 048
     Dates: start: 2013
  2. COCODAMOL [Concomitant]
     Active Substance: ACETAMINOPHEN\CODEINE PHOSPHATE
     Indication: BACK PAIN
     Dosage: 1?2 TABLETS, AS NEEDED/QDS
     Route: 048
     Dates: start: 20190802
  3. TALAZOPARIB. [Suspect]
     Active Substance: TALAZOPARIB
     Dosage: 0.5 MG, DAILY
     Route: 048
     Dates: start: 20190221, end: 20191015
  4. AVELUMAB [Suspect]
     Active Substance: AVELUMAB
     Dosage: 800 MG, CYCLIC (TWO WEEKLY)
     Route: 042
     Dates: start: 20190221, end: 20191015
  5. VOLTAREN [DICLOFENAC DIETHYLAMINE] [Concomitant]
     Active Substance: DICLOFENAC DIETHYLAMINE
     Indication: HEADACHE
     Dosage: 1?2 GRAMS, AS NEEDED
     Route: 061
     Dates: start: 20190801
  6. FUROSEMIDE. [Concomitant]
     Active Substance: FUROSEMIDE
     Indication: OEDEMA PERIPHERAL
     Dosage: 40 MG, 1X/DAY (OD)
     Route: 048
     Dates: start: 201804
  7. TRIMBOW [Concomitant]
     Active Substance: BECLOMETHASONE DIPROPIONATE\FORMOTEROL FUMARATE\GLYCOPYRROLATE
     Indication: CHRONIC OBSTRUCTIVE PULMONARY DISEASE
     Dosage: 2 PUFFS, 2X/DAY (BID)
     Route: 055
     Dates: start: 2018
  8. IBUPROFEN. [Concomitant]
     Active Substance: IBUPROFEN
     Indication: BACK PAIN
     Dosage: 300 MG, AS NEEDED/TDS
     Route: 048
     Dates: start: 20190808
  9. FELODIPINE. [Concomitant]
     Active Substance: FELODIPINE
     Indication: HYPERTENSION
     Dosage: 5 MG, 1X/DAY
     Route: 048
     Dates: start: 20190812
  10. ATENOLOL. [Concomitant]
     Active Substance: ATENOLOL
     Indication: HYPERTENSION
     Dosage: 50 MG, 1X/DAY (OD)
     Route: 048
     Dates: start: 2011
  11. RANITIDINE. [Concomitant]
     Active Substance: RANITIDINE
     Indication: PROPHYLAXIS
     Dosage: 150 MG, 2X/DAY (BD)
     Route: 048
     Dates: start: 20190129
  12. SALBUTAMOL [Concomitant]
     Active Substance: ALBUTEROL
     Indication: CHRONIC OBSTRUCTIVE PULMONARY DISEASE
     Dosage: 1 PUFF, AS NEEDED
     Route: 055
     Dates: start: 201603
  13. IBUPROFEN. [Concomitant]
     Active Substance: IBUPROFEN
     Indication: BACK PAIN
     Dosage: 1?2 GRAMS, AS NEEDED
     Route: 061
     Dates: start: 20190807
  14. SIMVASTATIN. [Concomitant]
     Active Substance: SIMVASTATIN
     Indication: PROPHYLAXIS
     Dosage: 40 MG, 1X/DAY (AT NIGHT)
     Route: 048
     Dates: start: 201208

REACTIONS (1)
  - Dyspnoea [Recovered/Resolved]

NARRATIVE: CASE EVENT DATE: 20190908
